FAERS Safety Report 8478622-0 (Version None)
Quarter: 2012Q2

REPORT INFORMATION
  Report Type: 
  Country: None (occurrence: None)
  Receive Date: 20120629
  Receipt Date: 20120626
  Transmission Date: 20120825
  Serious: Yes (Other)
  Sender: FDA-Public Use
  Company Number: US-PFIZER INC-2012154189

PATIENT
  Sex: Female
  Weight: 123 kg

DRUGS (6)
  1. ASPIRIN [Concomitant]
     Dosage: UNK
  2. CARVEDILOL [Concomitant]
     Dosage: UNK
  3. METFORMIN [Concomitant]
     Dosage: UNK
  4. TRAMADOL [Concomitant]
     Dosage: UNK
  5. LYRICA [Suspect]
     Indication: PAIN
     Dosage: 75 MG, 3X/DAY
     Route: 048
  6. LISINOPRIL [Concomitant]
     Dosage: UNK

REACTIONS (3)
  - INTERVERTEBRAL DISC DISORDER [None]
  - HEART RATE IRREGULAR [None]
  - PAIN [None]
